FAERS Safety Report 9007499 (Version 1)
Quarter: 2013Q1

REPORT INFORMATION
  Report Type: Spontaneous
  Country: US (occurrence: US)
  Receive Date: 20130111
  Receipt Date: 20130111
  Transmission Date: 20140127
  Serious: Yes (Other)
  Sender: FDA-Public Use
  Company Number: US-009507513-0909USA03235

PATIENT
  Age: 26 Year
  Sex: Female
  Weight: 53.52 kg

DRUGS (2)
  1. SINGULAIR [Suspect]
     Indication: HYPERSENSITIVITY
     Dosage: UNK UNK, QD AT BEDTIME
     Route: 048
     Dates: start: 20090108, end: 20090112
  2. SINGULAIR [Suspect]
     Indication: ASTHMA

REACTIONS (8)
  - Chest discomfort [Unknown]
  - Dizziness [Unknown]
  - Drug hypersensitivity [Unknown]
  - Dyspnoea [Unknown]
  - Eye swelling [Unknown]
  - Gait disturbance [Unknown]
  - Lip swelling [Unknown]
  - Swelling face [Unknown]
